FAERS Safety Report 9161464 (Version 1)
Quarter: 2013Q1

REPORT INFORMATION
  Report Type: Spontaneous
  Country: US (occurrence: US)
  Receive Date: 20130313
  Receipt Date: 20130313
  Transmission Date: 20140127
  Serious: No
  Sender: FDA-Public Use
  Company Number: US-009507513-1303USA005232

PATIENT
  Age: 33 Year
  Sex: Male

DRUGS (3)
  1. SAPHRIS [Suspect]
     Indication: ANXIETY
     Dosage: 5 MG, FREQUENCY UNSPECIFIED
     Dates: start: 20130221, end: 2013
  2. SAPHRIS [Suspect]
     Indication: BIPOLAR DISORDER
  3. PAXIL [Concomitant]

REACTIONS (1)
  - Somnambulism [Unknown]
